FAERS Safety Report 6912803-X (Version None)
Quarter: 2010Q3

REPORT INFORMATION
  Report Type: 
  Country: None (occurrence: None)
  Receive Date: 20100806
  Receipt Date: 20090107
  Transmission Date: 20110219
  Serious: No
  Sender: FDA-Public Use
  Company Number: US-PFIZER INC-2008101586

PATIENT
  Sex: Male
  Weight: 70.454 kg

DRUGS (6)
  1. DETROL LA [Suspect]
     Dosage: 4 MG, UNK
     Dates: start: 20081114
  2. FOSAMAX [Concomitant]
     Dosage: UNK
  3. ANTIHYPERTENSIVES [Concomitant]
     Dosage: UNK
  4. CHOLESTEROL- AND TRIGLYCERIDE REDUCERS [Concomitant]
     Dosage: UNK
  5. XALATAN [Concomitant]
     Dosage: UNK
  6. IBUPROFEN [Concomitant]
     Dosage: UNK

REACTIONS (1)
  - DRY MOUTH [None]
